FAERS Safety Report 21857420 (Version 1)
Quarter: 2023Q1

REPORT INFORMATION
  Report Type: Spontaneous
  Country: GB (occurrence: GB)
  Receive Date: 20230113
  Receipt Date: 20230113
  Transmission Date: 20230418
  Serious: Yes (Other)
  Sender: FDA-Public Use
  Company Number: GB-MHRA-MED-202212231958050380-CKZYM

PATIENT
  Age: 22 Year
  Sex: Female
  Weight: 43 kg

DRUGS (4)
  1. CITALOPRAM [Suspect]
     Active Substance: CITALOPRAM HYDROBROMIDE
     Indication: Anxiety
     Dosage: 10 MILLIGRAM, ONCE A DAY (IN THE MORNING (0.25ML)
     Route: 065
     Dates: start: 20221221
  2. CAFFEINE [Concomitant]
     Active Substance: CAFFEINE
     Indication: Intracranial hypotension
     Dosage: UNK
     Route: 065
     Dates: start: 20210810
  3. FERROUS FUMARATE [Concomitant]
     Active Substance: FERROUS FUMARATE
     Indication: Fatigue
     Dosage: UNK
     Route: 065
     Dates: start: 20220915
  4. ACETAMINOPHEN [Concomitant]
     Active Substance: ACETAMINOPHEN
     Indication: Intracranial hypotension
     Dosage: UNK
     Route: 065
     Dates: start: 20210810

REACTIONS (3)
  - Ocular icterus [Not Recovered/Not Resolved]
  - Abdominal discomfort [Unknown]
  - Nausea [Unknown]

NARRATIVE: CASE EVENT DATE: 20221222
